FAERS Safety Report 13834439 (Version 1)
Quarter: 2017Q3

REPORT INFORMATION
  Report Type: Spontaneous
  Country: US (occurrence: US)
  Receive Date: 20170804
  Receipt Date: 20170804
  Transmission Date: 20171127
  Serious: Yes (Hospitalization)
  Sender: FDA-Public Use
  Company Number: US-PRINSTON PHARMACEUTICAL INC.-2017PRN00319

PATIENT
  Sex: Female

DRUGS (4)
  1. BACTRIM DS [Suspect]
     Active Substance: SULFAMETHOXAZOLE\TRIMETHOPRIM
     Indication: URINARY TRACT INFECTION
     Dosage: 1 DOSAGE UNITS, 2X/DAY
     Route: 048
     Dates: start: 201406, end: 201406
  2. LYRICA [Concomitant]
     Active Substance: PREGABALIN
     Route: 048
  3. LISINOPRIL. [Suspect]
     Active Substance: LISINOPRIL
     Indication: HYPERTENSION
     Dosage: 10 MG, 1X/DAY
     Route: 048
     Dates: start: 2012, end: 201406
  4. LIPITOR [Concomitant]
     Active Substance: ATORVASTATIN CALCIUM
     Dosage: 10 MG, 2X/DAY
     Route: 048

REACTIONS (2)
  - Renal failure [Recovered/Resolved]
  - Drug hypersensitivity [Unknown]
